FAERS Safety Report 9645388 (Version 3)
Quarter: 2019Q1

REPORT INFORMATION
  Report Type: Spontaneous
  Country: JP (occurrence: JP)
  Receive Date: 20131025
  Receipt Date: 20190124
  Transmission Date: 20190418
  Serious: Yes (Life-Threatening, Disabling, Other)
  Sender: FDA-Public Use
  Company Number: JP-PFIZER INC-2013300645

PATIENT
  Age: 79 Year
  Sex: Male
  Weight: 63 kg

DRUGS (13)
  1. INLYTA [Suspect]
     Active Substance: AXITINIB
     Indication: METASTATIC RENAL CELL CARCINOMA
     Dosage: 3 MG, TWICE DAILY
     Route: 048
     Dates: start: 20130924, end: 20131015
  2. TICLOPIDINE [Concomitant]
     Active Substance: TICLOPIDINE
     Dosage: 100 MG, ONCE DAILY
     Route: 048
  3. SHINLUCK [Concomitant]
     Active Substance: SODIUM PICOSULFATE
     Dosage: 2.5 MG, TWICE DAILY
     Route: 048
  4. SENNOSIDE A [Concomitant]
     Active Substance: SENNOSIDE A
     Dosage: 12 MG, TWICE DAILY
     Route: 048
  5. DEPAS (ETIZOLAM) [Concomitant]
     Active Substance: ETIZOLAM
     Dosage: 0.5 MG, ONCE DAILY
     Route: 048
  6. URSODEOXYCHOLIC ACID [Concomitant]
     Active Substance: URSODIOL
     Dosage: 300 MG, ONCE DAILY
     Route: 048
  7. RABEPRAZOLE NA [Concomitant]
     Active Substance: RABEPRAZOLE SODIUM
     Dosage: 10 MG, ONCE DAILY
     Route: 048
  8. NEUROVITAN [Concomitant]
     Active Substance: VITAMINS
     Dosage: UNK, THREE TIMES DAILY
     Route: 048
  9. THYRADIN S [Concomitant]
     Active Substance: LEVOTHYROXINE SODIUM
     Dosage: 12.5 MEQ, UNK
     Route: 048
  10. WARFARIN [Concomitant]
     Active Substance: WARFARIN
     Dosage: 3 MG, ONCE DAILY
     Route: 048
  11. ROCALTROL [Concomitant]
     Active Substance: CALCITRIOL
     Dosage: 0.5 MG, ONCE DAILY
     Route: 048
  12. IFENPRODIL [Concomitant]
     Active Substance: IFENPRODIL
     Dosage: 20 MG, THREE TIMES DAILY
     Route: 048
  13. RHUBARB. [Concomitant]
     Active Substance: RHUBARB
     Dosage: 1 G, TWICE DAILY
     Route: 048

REACTIONS (4)
  - Gait disturbance [Recovering/Resolving]
  - Decreased appetite [Recovering/Resolving]
  - Platelet count decreased [Unknown]
  - Cognitive disorder [Recovering/Resolving]

NARRATIVE: CASE EVENT DATE: 20131008
